FAERS Safety Report 23587466 (Version 1)
Quarter: 2024Q1

REPORT INFORMATION
  Report Type: Spontaneous
  Country: US (occurrence: US)
  Receive Date: 20240301
  Receipt Date: 20240301
  Transmission Date: 20240409
  Serious: No
  Sender: FDA-Public Use
  Company Number: US-MYLANLABS-2024M1015817

PATIENT
  Sex: Female
  Weight: 56.7 kg

DRUGS (1)
  1. ESTRADIOL TRANSDERMAL SYSTEM [Suspect]
     Active Substance: ESTRADIOL
     Indication: Menopausal symptoms
     Dosage: 0.05 MILLIGRAM, QD (TWICE A WEEK)
     Route: 062
     Dates: start: 202401

REACTIONS (3)
  - Hot flush [Recovered/Resolved]
  - Palpitations [Recovered/Resolved]
  - Drug ineffective [Unknown]
